FAERS Safety Report 6800946-0 (Version None)
Quarter: 2010Q2

REPORT INFORMATION
  Report Type: 
  Country: None (occurrence: None)
  Receive Date: 20100629
  Receipt Date: 20100622
  Transmission Date: 20101027
  Serious: Yes (Hospitalization, Other)
  Sender: FDA-Public Use
  Company Number: PHHY2010JP39592

PATIENT
  Age: 77 Year
  Sex: Female

DRUGS (3)
  1. COMTAN [Suspect]
     Indication: PARKINSON'S DISEASE
     Dosage: 200 MG, DAILY
     Route: 048
  2. REQUIP [Suspect]
     Dosage: 2 MG, UNK
     Route: 048
  3. MADOPAR [Concomitant]
     Dosage: 400 MG, UNK
     Route: 048

REACTIONS (2)
  - GENERALISED OEDEMA [None]
  - PLEURAL EFFUSION [None]
